FAERS Safety Report 24156564 (Version 1)
Quarter: 2024Q3

REPORT INFORMATION
  Report Type: Spontaneous
  Country: US (occurrence: None)
  Receive Date: 20240730
  Receipt Date: 20240730
  Transmission Date: 20241017
  Serious: Yes (unspecified)
  Sender: Public
  Company Number: None

PATIENT
  Age: 49 Year
  Sex: Female

DRUGS (1)
  1. HUMIRA [Suspect]
     Active Substance: ADALIMUMAB
     Indication: Crohn^s disease
     Dosage: FREQUENCY : EVERY OTHER WEEK;?

REACTIONS (5)
  - Skin irritation [None]
  - Rash papular [None]
  - Rash pustular [None]
  - Exfoliative rash [None]
  - Skin exfoliation [None]
